FAERS Safety Report 24460112 (Version 1)
Quarter: 2024Q4

REPORT INFORMATION
  Report Type: Report from Study
  Country: US (occurrence: US)
  Receive Date: 20241018
  Receipt Date: 20241018
  Transmission Date: 20250114
  Serious: No
  Sender: ROCHE
  Company Number: US-ROCHE-3559579

PATIENT
  Age: 75 Year
  Sex: Female

DRUGS (1)
  1. RITUXAN [Suspect]
     Active Substance: RITUXIMAB
     Indication: Granulomatosis with polyangiitis
     Dosage: INFUSE 1000MG INTRAVENOUSLY ON DAY(S) 1 AND DAY(S) 15 EVERY 6 MONTHS? FREQUENCY TEXT:ON DAY(S) 1 AND
     Route: 041

REACTIONS (2)
  - Off label use [Unknown]
  - No adverse event [Unknown]
